FAERS Safety Report 9170360 (Version 2)
Quarter: 2013Q1

REPORT INFORMATION
  Report Type: Spontaneous
  Country: US (occurrence: US)
  Receive Date: 20130319
  Receipt Date: 20130325
  Transmission Date: 20140127
  Serious: Yes (Hospitalization)
  Sender: FDA-Public Use
  Company Number: US-BAYER-2013-031454

PATIENT
  Age: 35 Year
  Sex: Female

DRUGS (11)
  1. YAZ [Suspect]
  2. YASMIN [Suspect]
  3. ZYRTEC [CETIRIZINE HYDROCHLORIDE] [Concomitant]
  4. ZANTAC [Concomitant]
  5. SINGULAIR [Concomitant]
  6. ALLEGRA [Concomitant]
  7. NEXIUM [Concomitant]
  8. ZOLOFT [Concomitant]
  9. AVELOX [Concomitant]
  10. CEPHALEXIN [Concomitant]
  11. PROPOXYPHENE HCL AND ACETAMINOPHEN [Concomitant]

REACTIONS (1)
  - Deep vein thrombosis [Recovering/Resolving]
